FAERS Safety Report 20307510 (Version 3)
Quarter: 2022Q1

REPORT INFORMATION
  Report Type: Report from Study
  Country: ZA (occurrence: ZA)
  Receive Date: 20220107
  Receipt Date: 20220125
  Transmission Date: 20220423
  Serious: Yes (Hospitalization)
  Sender: FDA-Public Use
  Company Number: ZA-ABBVIE-22K-143-4222973-00

PATIENT
  Sex: Male

DRUGS (1)
  1. HUMIRA [Suspect]
     Active Substance: ADALIMUMAB
     Indication: Colitis ulcerative
     Route: 058
     Dates: start: 20211202

REACTIONS (5)
  - Haematochezia [Not Recovered/Not Resolved]
  - C-reactive protein abnormal [Recovered/Resolved]
  - C-reactive protein abnormal [Recovered/Resolved]
  - Haemoglobin abnormal [Recovered/Resolved]
  - Pyrexia [Not Recovered/Not Resolved]
